FAERS Safety Report 5137016-6 (Version None)
Quarter: 2006Q4

REPORT INFORMATION
  Report Type: 
  Country: None (occurrence: None)
  Receive Date: 20061030
  Receipt Date: 20060929
  Transmission Date: 20070319
  Serious: Yes (Hospitalization, Other)
  Sender: FDA-Public Use
  Company Number: PHBS2006ES15378

PATIENT
  Age: 60 Year
  Sex: Male

DRUGS (3)
  1. VALSARTAN [Suspect]
     Indication: HYPERTENSION
  2. DOXAZOSIN MESYLATE [Suspect]
  3. LECARNIDIPINE [Suspect]

REACTIONS (13)
  - AZOTAEMIA [None]
  - COAGULOPATHY [None]
  - DIALYSIS [None]
  - DIZZINESS [None]
  - FLUID INTAKE REDUCED [None]
  - HAEMATURIA [None]
  - MALAISE [None]
  - NAUSEA [None]
  - PROTEINURIA [None]
  - RENAL ARTERY STENOSIS [None]
  - RENAL ARTERY STENT PLACEMENT [None]
  - RENAL FAILURE [None]
  - VOMITING [None]
